FAERS Safety Report 5545902-8 (Version None)
Quarter: 2007Q4

REPORT INFORMATION
  Report Type: 
  Country: None (occurrence: None)
  Receive Date: 20071211
  Receipt Date: 20070927
  Transmission Date: 20080405
  Serious: No
  Sender: FDA-Public Use
  Company Number: US-ASTRAZENECA-2007UW22709

PATIENT
  Age: 74 Year
  Sex: Female
  Weight: 63.5 kg

DRUGS (14)
  1. SYMBICORT [Suspect]
     Dosage: 80/4.5 UG
     Route: 055
  2. PRILOSEC [Concomitant]
     Route: 048
  3. CRESTOR [Concomitant]
     Route: 048
  4. ASTALIN [Concomitant]
  5. CENTRUM SILVER [Concomitant]
  6. CALCIUM (CA) [Concomitant]
  7. ASPIRIN [Concomitant]
  8. BISOPROLOL FUMARATE [Concomitant]
  9. OPTIC SALINE [Concomitant]
  10. NASAL MIST [Concomitant]
  11. LEVOXYL [Concomitant]
  12. ZOLPIDEM TARTRATE [Concomitant]
  13. OMEGA 6 [Concomitant]
  14. VITAMIN D [Concomitant]

REACTIONS (5)
  - EAR CONGESTION [None]
  - EAR PAIN [None]
  - HEADACHE [None]
  - PHARYNGOLARYNGEAL PAIN [None]
  - STOMACH DISCOMFORT [None]
